FAERS Safety Report 11046236 (Version 1)
Quarter: 2015Q2

REPORT INFORMATION
  Report Type: Spontaneous
  Country: US (occurrence: US)
  Receive Date: 20150418
  Receipt Date: 20150418
  Transmission Date: 20150821
  Serious: Yes (Other)
  Sender: FDA-Public Use
  Company Number: US-JNJFOC-20150410088

PATIENT
  Age: 84 Year
  Sex: Male
  Weight: 68.04 kg

DRUGS (3)
  1. BENADRYL ALLERGY [Suspect]
     Active Substance: DIPHENHYDRAMINE HYDROCHLORIDE
     Indication: SLEEP DISORDER THERAPY
     Dosage: 1 TABLET AT NIGHT
     Route: 048
  2. BENADRYL ALLERGY [Suspect]
     Active Substance: DIPHENHYDRAMINE HYDROCHLORIDE
     Route: 048
  3. ALEVE [Concomitant]
     Active Substance: NAPROXEN SODIUM
     Indication: ARTHRALGIA
     Route: 065

REACTIONS (2)
  - Product use issue [Unknown]
  - Blood pressure increased [Not Recovered/Not Resolved]
